FAERS Safety Report 10169229 (Version 1)
Quarter: 2014Q2

REPORT INFORMATION
  Report Type: Spontaneous
  Country: US (occurrence: US)
  Receive Date: 20140513
  Receipt Date: 20140513
  Transmission Date: 20141212
  Serious: No
  Sender: FDA-Public Use
  Company Number: US-MYLANLABS-2014S1006421

PATIENT
  Age: 57 Year
  Sex: Female

DRUGS (5)
  1. VERAPAMIL HYDROCHLORIDE EXTENDED-RELEASE CAPSULES [Suspect]
     Indication: OFF LABEL USE
     Route: 048
     Dates: start: 2007
  2. SPIRONOLACTONE [Concomitant]
     Indication: HORMONE THERAPY
     Route: 048
  3. BYSTOLIC [Concomitant]
     Indication: BLOOD PRESSURE INCREASED
     Route: 048
     Dates: start: 2007
  4. SIMVASTATIN [Concomitant]
     Indication: BLOOD CHOLESTEROL INCREASED
     Route: 048
     Dates: start: 2012
  5. VERAPAMIL HYDROCHLORIDE EXTENDED-RELEASE CAPSULES [Suspect]
     Indication: PALPITATIONS
     Route: 048
     Dates: start: 2007

REACTIONS (3)
  - Drug interaction [Not Recovered/Not Resolved]
  - Urticaria [Not Recovered/Not Resolved]
  - Rash [Not Recovered/Not Resolved]
